FAERS Safety Report 8578641-X (Version None)
Quarter: 2012Q3

REPORT INFORMATION
  Report Type: 
  Country: None (occurrence: None)
  Receive Date: 20120808
  Receipt Date: 20120730
  Transmission Date: 20120928
  Serious: Yes (Other)
  Sender: FDA-Public Use
  Company Number: JP-VERTEX PHARMACEUTICALS INC.-AE-2012-011415

PATIENT
  Age: 55 Year
  Sex: Male

DRUGS (9)
  1. SELBEX [Concomitant]
     Route: 048
     Dates: start: 20120417
  2. PEGINTERFERON ALFA-2B [Concomitant]
     Indication: HEPATITIS C
     Route: 058
     Dates: start: 20120417
  3. RIBAVIRIN [Concomitant]
     Route: 048
     Dates: start: 20120515, end: 20120708
  4. TELAVIC [Suspect]
     Indication: HEPATITIS C
     Route: 048
     Dates: start: 20120417, end: 20120709
  5. RIBAVIRIN [Concomitant]
     Route: 048
     Dates: start: 20120508, end: 20120514
  6. RIBAVIRIN [Concomitant]
     Route: 048
     Dates: start: 20120709
  7. CANDESARTAN CILEXETIL [Concomitant]
     Route: 048
  8. RIBAVIRIN [Concomitant]
     Indication: HEPATITIS C
     Route: 048
     Dates: start: 20120417, end: 20120507
  9. XYZAL [Concomitant]
     Route: 048
     Dates: start: 20120313, end: 20120708

REACTIONS (1)
  - WHITE BLOOD CELL COUNT DECREASED [None]
